FAERS Safety Report 4530702-8 (Version None)
Quarter: 2004Q4

REPORT INFORMATION
  Report Type: 
  Country: None (occurrence: None)
  Receive Date: 20041217
  Receipt Date: 20041027
  Transmission Date: 20050328
  Serious: Yes (Other)
  Sender: FDA-Public Use
  Company Number: FR-GLAXOSMITHKLINE-B0349633A

PATIENT
  Age: 51 Year
  Sex: Male
  Weight: 65 kg

DRUGS (2)
  1. AVANDIA [Suspect]
     Indication: DIABETES MELLITUS NON-INSULIN-DEPENDENT
     Dosage: 6MG PER DAY
     Route: 048
     Dates: start: 20040116
  2. STAGID [Suspect]
     Indication: DIABETES MELLITUS NON-INSULIN-DEPENDENT
     Dosage: 700MG THREE TIMES PER DAY
     Route: 048
     Dates: start: 20040116

REACTIONS (2)
  - CONDITION AGGRAVATED [None]
  - HYPERTRIGLYCERIDAEMIA [None]
